FAERS Safety Report 14567982 (Version 3)
Quarter: 2018Q3

REPORT INFORMATION
  Report Type: Spontaneous
  Country: FR (occurrence: FR)
  Receive Date: 20180223
  Receipt Date: 20180821
  Transmission Date: 20181010
  Serious: Yes (Other)
  Sender: FDA-Public Use
  Company Number: FR-PFIZER INC-2018072243

PATIENT
  Age: 80 Year
  Sex: Male

DRUGS (6)
  1. ELIQUIS [Concomitant]
     Active Substance: APIXABAN
     Dosage: 5 MG, 2X/DAY
  2. EFFEXOR [Suspect]
     Active Substance: VENLAFAXINE HYDROCHLORIDE
     Dosage: UNK
  3. SOTALEX [Interacting]
     Active Substance: SOTALOL
     Dosage: 160 MG, 1X/DAY
  4. SOTALEX [Interacting]
     Active Substance: SOTALOL
     Indication: ARRHYTHMIA
     Dosage: 160 MG, 2X/DAY
     Dates: start: 20180703
  5. SOTALEX [Interacting]
     Active Substance: SOTALOL
     Dosage: 80 MG, 1X/DAY
  6. DEBRIDAT /00465201/ [Concomitant]
     Active Substance: TRIMEBUTINE MALEATE

REACTIONS (5)
  - Abdominal pain upper [Unknown]
  - Drug interaction [Unknown]
  - Blood pressure decreased [Unknown]
  - Blood pressure increased [Unknown]
  - Arrhythmia [Unknown]

NARRATIVE: CASE EVENT DATE: 20180703
